FAERS Safety Report 13282001 (Version 2)
Quarter: 2018Q1

REPORT INFORMATION
  Report Type: Spontaneous
  Country: IT (occurrence: IT)
  Receive Date: 20170301
  Receipt Date: 20180202
  Transmission Date: 20180508
  Serious: Yes (Hospitalization, Other)
  Sender: FDA-Public Use
  Company Number: IT-VIIV HEALTHCARE LIMITED-IT2017GSK018595

PATIENT
  Age: 58 Year
  Sex: Male

DRUGS (2)
  1. DIBASE [Concomitant]
     Active Substance: CHOLECALCIFEROL
     Indication: PRODUCT USED FOR UNKNOWN INDICATION
     Dosage: UNK
     Route: 065
  2. TRIUMEQ [Suspect]
     Active Substance: ABACAVIR SULFATE\DOLUTEGRAVIR SODIUM\LAMIVUDINE
     Indication: HIV INFECTION
     Dosage: 1 DF, QD
     Route: 048
     Dates: start: 20160520, end: 20161201

REACTIONS (7)
  - Hepatitis cholestatic [Not Recovered/Not Resolved]
  - Rash [Recovering/Resolving]
  - Vasculitis [Unknown]
  - Eosinophilia [Not Recovered/Not Resolved]
  - Hepatic infiltration eosinophilic [Recovering/Resolving]
  - Pyrexia [Unknown]
  - Autoimmune hepatitis [Recovering/Resolving]

NARRATIVE: CASE EVENT DATE: 20161210
